FAERS Safety Report 20671613 (Version 1)
Quarter: 2022Q2

REPORT INFORMATION
  Report Type: Spontaneous
  Country: US (occurrence: US)
  Receive Date: 20220404
  Receipt Date: 20220404
  Transmission Date: 20220721
  Serious: Yes (Death, Hospitalization, Other)
  Sender: FDA-Public Use
  Company Number: US-APOTEX-2022AP005474

PATIENT
  Age: 22 Month
  Sex: Male

DRUGS (1)
  1. BUSULFAN [Suspect]
     Active Substance: BUSULFAN
     Indication: Neuroblastoma
     Dosage: TOTAL DOSE OF 150 MILLIGRAM, SIX ROUNDS OF CHEMOTHERAPY
     Route: 065

REACTIONS (3)
  - Respiratory failure [Fatal]
  - Alveolar proteinosis [Not Recovered/Not Resolved]
  - Interstitial lung disease [Not Recovered/Not Resolved]
